FAERS Safety Report 23043932 (Version 3)
Quarter: 2023Q4

REPORT INFORMATION
  Report Type: Spontaneous
  Country: US (occurrence: US)
  Receive Date: 20231009
  Receipt Date: 20231020
  Transmission Date: 20240109
  Serious: No
  Sender: FDA-Public Use
  Company Number: US-BEIGENE-BGN-2023-011153

PATIENT

DRUGS (1)
  1. BRUKINSA [Suspect]
     Active Substance: ZANUBRUTINIB
     Indication: Non-Hodgkin^s lymphoma
     Dosage: 80 MILLIGRAM, 12 HOURS
     Route: 048
     Dates: start: 202307

REACTIONS (4)
  - Headache [Not Recovered/Not Resolved]
  - Oropharyngeal pain [Unknown]
  - Ear pain [Unknown]
  - Insomnia [Unknown]
